FAERS Safety Report 9130900 (Version 1)
Quarter: 2013Q1

REPORT INFORMATION
  Report Type: Spontaneous
  Country: US (occurrence: US)
  Receive Date: 20130301
  Receipt Date: 20130301
  Transmission Date: 20140127
  Serious: No
  Sender: FDA-Public Use
  Company Number: US-MYLANLABS-2012S1017306

PATIENT
  Age: 70 Year
  Sex: Male

DRUGS (8)
  1. METOPROLOL TARTRATE TABLETS, USP [Suspect]
     Indication: ARRHYTHMIA
     Dosage: 50MG QAM, 100MG HS
     Route: 048
  2. PLAVIX [Concomitant]
  3. AMLODIPINE BENAZEPRIL [Concomitant]
  4. FAMOTIDINE [Concomitant]
  5. DOXAZOSIN [Concomitant]
  6. KCL [Concomitant]
  7. SIMVASTATIN [Concomitant]
  8. FINASTERIDE [Concomitant]

REACTIONS (1)
  - Glossodynia [Not Recovered/Not Resolved]
